FAERS Safety Report 5056138-1 (Version None)
Quarter: 2006Q3

REPORT INFORMATION
  Report Type: 
  Country: None (occurrence: None)
  Receive Date: 20060720
  Receipt Date: 20050517
  Transmission Date: 20061208
  Serious: Yes (Hospitalization, Other)
  Sender: FDA-Public Use
  Company Number: ES-GLAXOSMITHKLINE-B0382056A

PATIENT
  Age: 66 Year
  Sex: Male

DRUGS (4)
  1. LAMICTAL [Suspect]
     Indication: BIPOLAR I DISORDER
     Route: 048
     Dates: start: 20041209, end: 20041222
  2. DISTRANEURINE [Concomitant]
  3. NOCTAMID [Concomitant]
  4. TRANXILIUM [Concomitant]

REACTIONS (13)
  - BLINDNESS [None]
  - COMA [None]
  - CONJUNCTIVITIS [None]
  - INSOMNIA [None]
  - MUCOSAL ULCERATION [None]
  - MUCOUS MEMBRANE DISORDER [None]
  - ODYNOPHAGIA [None]
  - PHIMOSIS [None]
  - PYREXIA [None]
  - RASH [None]
  - SKIN EXFOLIATION [None]
  - STEVENS-JOHNSON SYNDROME [None]
  - TOOTH DISORDER [None]
